FAERS Safety Report 4340424-4 (Version None)
Quarter: 2004Q2

REPORT INFORMATION
  Report Type: 
  Country: None (occurrence: None)
  Receive Date: 20040414
  Receipt Date: 20040330
  Transmission Date: 20050107
  Serious: Yes (Other)
  Sender: FDA-Public Use
  Company Number: 2004UW04433

PATIENT
  Age: 78 Year
  Sex: Male
  Weight: 82.5547 kg

DRUGS (4)
  1. CRESTOR [Suspect]
     Indication: BLOOD CHOLESTEROL INCREASED
     Dosage: 10 MG QD PO
     Route: 048
     Dates: start: 20031118, end: 20040127
  2. MULTI-VITAMIN [Concomitant]
  3. ASPIRIN [Concomitant]
  4. CALCIUM [Concomitant]

REACTIONS (3)
  - HAEMATOMA [None]
  - JOINT EFFUSION [None]
  - MUSCLE RUPTURE [None]
